FAERS Safety Report 7285130-1 (Version None)
Quarter: 2011Q1

REPORT INFORMATION
  Report Type: 
  Country: None (occurrence: None)
  Receive Date: 20110210
  Receipt Date: 20110202
  Transmission Date: 20110831
  Serious: Yes (Hospitalization)
  Sender: FDA-Public Use
  Company Number: PHHY2011DE04242

PATIENT
  Sex: Female

DRUGS (2)
  1. EXTAVIA [Suspect]
     Indication: MULTIPLE SCLEROSIS
     Dosage: 250 UG, QOD
     Route: 058
     Dates: start: 20090310, end: 20101001
  2. EXTAVIA [Suspect]
     Indication: MUSCLE SPASTICITY

REACTIONS (2)
  - OVARIAN CYST [None]
  - MUSCLE SPASTICITY [None]
